FAERS Safety Report 5807870-0 (Version None)
Quarter: 2008Q3

REPORT INFORMATION
  Report Type: 
  Country: None (occurrence: None)
  Receive Date: 20080711
  Receipt Date: 20080708
  Transmission Date: 20090109
  Serious: Yes (Life-Threatening, Disabling, Other)
  Sender: FDA-Public Use
  Company Number: AU-BOEHRINGER INGELHEIM GMBH, GERMANY-2008-BP-09824AU

PATIENT
  Sex: Male
  Weight: 105 kg

DRUGS (6)
  1. MOBIC [Suspect]
     Indication: MUSCULOSKELETAL DISCOMFORT
     Route: 048
     Dates: start: 20080517
  2. ASPIRIN [Concomitant]
     Route: 048
  3. CANDESARTAN [Concomitant]
     Route: 048
  4. CARVEDILOL [Concomitant]
     Route: 048
  5. COVERSYL PLUS [Concomitant]
     Route: 048
  6. METFORMIN [Concomitant]
     Route: 048

REACTIONS (1)
  - CARDIAC FAILURE ACUTE [None]
